FAERS Safety Report 9853440 (Version 3)
Quarter: 2014Q2

REPORT INFORMATION
  Report Type: Spontaneous
  Country: US (occurrence: US)
  Receive Date: 20140129
  Receipt Date: 20140512
  Transmission Date: 20141212
  Serious: Yes (Other)
  Sender: FDA-Public Use
  Company Number: US-GLAXOSMITHKLINE-A1057678A

PATIENT
  Age: 48 Year
  Sex: Female

DRUGS (5)
  1. VENTOLIN HFA [Suspect]
     Indication: ASTHMA
     Dosage: 2PUFF AS REQUIRED
     Route: 055
     Dates: start: 2010
  2. ADVAIR HFA [Suspect]
     Indication: ASTHMA
     Dosage: 1PUFF TWICE PER DAY
     Route: 055
     Dates: start: 2013
  3. THYROID MEDICATION [Concomitant]
  4. ANTIDEPRESSANT [Concomitant]
  5. NEBULIZER [Concomitant]

REACTIONS (7)
  - Pneumonia [Recovering/Resolving]
  - Respiratory therapy [Recovering/Resolving]
  - Malaise [Unknown]
  - Inhalation therapy [Recovering/Resolving]
  - Nasopharyngitis [Not Recovered/Not Resolved]
  - Influenza [Unknown]
  - Disease progression [Unknown]
